FAERS Safety Report 24095849 (Version 4)
Quarter: 2024Q3

REPORT INFORMATION
  Report Type: Spontaneous
  Country: BR (occurrence: BR)
  Receive Date: 20240716
  Receipt Date: 20240927
  Transmission Date: 20241016
  Serious: No
  Sender: AMGEN
  Company Number: BR-AMGEN-BRASP2024136702

PATIENT
  Sex: Male

DRUGS (1)
  1. PEGFILGRASTIM [Suspect]
     Active Substance: PEGFILGRASTIM
     Indication: Product used for unknown indication
     Dosage: UNK
     Route: 065

REACTIONS (3)
  - Accidental exposure to product [Unknown]
  - Device leakage [Unknown]
  - Device placement issue [Unknown]

NARRATIVE: CASE EVENT DATE: 20240705
